FAERS Safety Report 6401878-2 (Version None)
Quarter: 2009Q4

REPORT INFORMATION
  Report Type: 
  Country: None (occurrence: None)
  Receive Date: 20091015
  Receipt Date: 20091006
  Transmission Date: 20100525
  Serious: Yes (Other)
  Sender: FDA-Public Use
  Company Number: DE-JNJFOC-20091004142

PATIENT
  Age: 69 Year
  Sex: Female

DRUGS (5)
  1. REOPRO [Suspect]
     Indication: PERCUTANEOUS CORONARY INTERVENTION
     Route: 042
     Dates: start: 20091005
  2. REOPRO [Suspect]
     Indication: ACUTE MYOCARDIAL INFARCTION
     Dosage: STANDARD DOSE OVER 12 HOURS
     Route: 042
     Dates: start: 20091005
  3. HEPARIN [Concomitant]
  4. ACETYLSALICYLIC ACID [Concomitant]
  5. CLOPIDOGREL [Concomitant]

REACTIONS (1)
  - CORONARY ARTERY THROMBOSIS [None]
